FAERS Safety Report 7326233-2 (Version None)
Quarter: 2011Q1

REPORT INFORMATION
  Report Type: 
  Country: None (occurrence: None)
  Receive Date: 20110302
  Receipt Date: 20110223
  Transmission Date: 20110831
  Serious: Yes (Other)
  Sender: FDA-Public Use
  Company Number: A0901568A

PATIENT

DRUGS (1)
  1. ADVAIR DISKUS 100/50 [Suspect]
     Route: 065

REACTIONS (5)
  - GLUCOSE TOLERANCE IMPAIRED [None]
  - INTRAOCULAR PRESSURE INCREASED [None]
  - CATARACT [None]
  - OROPHARYNGEAL CANDIDIASIS [None]
  - PALPITATIONS [None]
